FAERS Safety Report 14093178 (Version 3)
Quarter: 2017Q4

REPORT INFORMATION
  Report Type: Spontaneous
  Country: CH (occurrence: CH)
  Receive Date: 20171016
  Receipt Date: 20171117
  Transmission Date: 20180321
  Serious: Yes (Death, Hospitalization, Other)
  Sender: FDA-Public Use
  Company Number: CH-PFIZER INC-2017442616

PATIENT
  Age: 57 Year
  Sex: Male
  Weight: 74 kg

DRUGS (2)
  1. CRIZOTINIB [Suspect]
     Active Substance: CRIZOTINIB
     Dosage: UNK
     Route: 048
  2. CRIZOTINIB [Suspect]
     Active Substance: CRIZOTINIB
     Indication: NON-SMALL CELL LUNG CANCER
     Dosage: UNK
     Route: 048

REACTIONS (9)
  - Pleural effusion [Fatal]
  - Dysphagia [Fatal]
  - Respiratory failure [Fatal]
  - Atelectasis [Unknown]
  - Superinfection [Fatal]
  - Infection [Fatal]
  - Atrial fibrillation [Fatal]
  - Pericardial effusion [Fatal]
  - Subclavian vein thrombosis [Unknown]
